FAERS Safety Report 10236059 (Version 1)
Quarter: 2014Q2

REPORT INFORMATION
  Report Type: Spontaneous
  Country: US (occurrence: US)
  Receive Date: 20140613
  Receipt Date: 20140613
  Transmission Date: 20141212
  Serious: No
  Sender: FDA-Public Use
  Company Number: US-BAYER-2014-088811

PATIENT
  Sex: Female

DRUGS (1)
  1. MIRENA [Suspect]
     Dosage: 20 MCG/24HR, CONT
     Route: 015
     Dates: start: 2012

REACTIONS (6)
  - Abdominal pain [None]
  - Dyspareunia [None]
  - Breast tenderness [None]
  - Device expulsion [None]
  - Amenorrhoea [None]
  - Hypomenorrhoea [None]
